FAERS Safety Report 8320394-4 (Version None)
Quarter: 2012Q2

REPORT INFORMATION
  Report Type: 
  Country: None (occurrence: None)
  Receive Date: 20120426
  Receipt Date: 20120426
  Transmission Date: 20120825
  Serious: No
  Sender: FDA-Public Use
  Company Number: None

PATIENT
  Age: 70 Year
  Sex: Female
  Weight: 120.6568 kg

DRUGS (1)
  1. PRADAXA [Suspect]

REACTIONS (2)
  - WITHDRAWAL SYNDROME [None]
  - FORMICATION [None]
